FAERS Safety Report 19176096 (Version 1)
Quarter: 2021Q2

REPORT INFORMATION
  Report Type: Report from Study
  Country: US (occurrence: CA)
  Receive Date: 20210423
  Receipt Date: 20210423
  Transmission Date: 20210717
  Serious: Yes (Other)
  Sender: FDA-Public Use
  Company Number: US-EXELIXIS-CABO-21039604

PATIENT
  Age: 83 Year
  Sex: Male

DRUGS (19)
  1. CABOMETYX [Suspect]
     Active Substance: CABOZANTINIB S-MALATE
     Indication: RENAL CELL CARCINOMA
     Dosage: 20 MG, QD
     Route: 048
     Dates: start: 20200708, end: 202010
  2. METFORMIN [Concomitant]
     Active Substance: METFORMIN HYDROCHLORIDE
  3. ROSUVASTATIN. [Concomitant]
     Active Substance: ROSUVASTATIN
  4. SPIRIVA [Concomitant]
     Active Substance: TIOTROPIUM BROMIDE MONOHYDRATE
  5. CABOMETYX [Suspect]
     Active Substance: CABOZANTINIB S-MALATE
     Dosage: 20 MG (07 DAY ON AND 07 DAY OFF)
     Route: 048
     Dates: start: 202101
  6. FUROSEMIDE. [Concomitant]
     Active Substance: FUROSEMIDE
  7. PANTOPRAZOLE [Concomitant]
     Active Substance: PANTOPRAZOLE
  8. TAMSULOSIN [Concomitant]
     Active Substance: TAMSULOSIN
  9. HYDROCORTISONE VALERATE. [Concomitant]
     Active Substance: HYDROCORTISONE VALERATE
     Dosage: UNK
  10. SENNOSIDE [Concomitant]
     Active Substance: SENNOSIDES
  11. BISOPROLOL [Concomitant]
     Active Substance: BISOPROLOL
  12. LACTULOSE. [Concomitant]
     Active Substance: LACTULOSE
  13. LORAZEPAM. [Concomitant]
     Active Substance: LORAZEPAM
  14. ALLOPURINOL. [Concomitant]
     Active Substance: ALLOPURINOL
  15. FOLIC ACID. [Concomitant]
     Active Substance: FOLIC ACID
  16. IRON [Concomitant]
     Active Substance: IRON
  17. NITROGLYCERIN. [Concomitant]
     Active Substance: NITROGLYCERIN
  18. LEVOTHYROXINE. [Concomitant]
     Active Substance: LEVOTHYROXINE
  19. RAMIPRIL. [Concomitant]
     Active Substance: RAMIPRIL

REACTIONS (8)
  - Gallbladder disorder [Unknown]
  - Fatigue [Unknown]
  - Stomatitis [Unknown]
  - Candida infection [Unknown]
  - Dry mouth [Unknown]
  - Inappropriate schedule of product administration [Unknown]
  - Dysphagia [Unknown]
  - Decreased appetite [Unknown]

NARRATIVE: CASE EVENT DATE: 202010
